FAERS Safety Report 7658221-0 (Version None)
Quarter: 2011Q3

REPORT INFORMATION
  Report Type: 
  Country: None (occurrence: None)
  Receive Date: 20110805
  Receipt Date: 20110727
  Transmission Date: 20111222
  Serious: Yes (Hospitalization)
  Sender: FDA-Public Use
  Company Number: CA-JNJFOC-20110711520

PATIENT
  Sex: Male
  Weight: 87.54 kg

DRUGS (11)
  1. CALCIUM ACETATE [Concomitant]
  2. HYDROXYZINE HCL [Concomitant]
  3. NADOLOL [Concomitant]
  4. PREDNISONE [Concomitant]
  5. STELARA [Suspect]
     Indication: PSORIASIS
     Dosage: FREQUENCY REPORTED AS 0, 4, Q 8 WEEKS
     Route: 058
     Dates: start: 20101209, end: 20110429
  6. FUROSEMIDE [Concomitant]
  7. OMEPRAZOLE [Concomitant]
  8. SPIRONOLACTONE [Concomitant]
  9. ASPIRIN [Concomitant]
  10. LACTULOSE [Concomitant]
  11. DIAMICRON [Concomitant]

REACTIONS (1)
  - STAPHYLOCOCCAL OSTEOMYELITIS [None]
